FAERS Safety Report 20987535 (Version 1)
Quarter: 2022Q2

REPORT INFORMATION
  Report Type: Spontaneous
  Country: US (occurrence: US)
  Receive Date: 20220621
  Receipt Date: 20220621
  Transmission Date: 20220720
  Serious: Yes (Other)
  Sender: FDA-Public Use
  Company Number: US-SA-SAC20220616001478

PATIENT
  Age: 58 Year
  Sex: Female

DRUGS (1)
  1. ZANTAC [Suspect]
     Active Substance: RANITIDINE HYDROCHLORIDE
     Indication: Dyspepsia
     Dosage: 25 MG FREQUENCY: OCCASIONAL
     Route: 065
     Dates: start: 200302, end: 200302

REACTIONS (2)
  - Hepatic cancer [Not Recovered/Not Resolved]
  - Thyroid cancer stage 0 [Not Recovered/Not Resolved]

NARRATIVE: CASE EVENT DATE: 20120301
